FAERS Safety Report 9856688 (Version 1)
Quarter: 2014Q1

REPORT INFORMATION
  Report Type: Spontaneous
  Country: US (occurrence: US)
  Receive Date: 20140130
  Receipt Date: 20140130
  Transmission Date: 20141002
  Serious: Yes (Hospitalization)
  Sender: FDA-Public Use
  Company Number: US-GLAXOSMITHKLINE-A1058277A

PATIENT
  Age: 52 Year
  Sex: Female

DRUGS (3)
  1. REQUIP XL [Suspect]
     Indication: RESTLESS LEGS SYNDROME
     Dosage: 2MG AT NIGHT
     Route: 048
     Dates: start: 201201
  2. CYMBALTA [Concomitant]
  3. DEPAKOTE [Concomitant]

REACTIONS (2)
  - Suicidal ideation [Unknown]
  - Mental disorder [Unknown]
